FAERS Safety Report 11803974 (Version 2)
Quarter: 2016Q4

REPORT INFORMATION
  Report Type: Spontaneous
  Country: US (occurrence: US)
  Receive Date: 20151204
  Receipt Date: 20161214
  Transmission Date: 20170206
  Serious: No
  Sender: FDA-Public Use
  Company Number: US-ASTRAZENECA-2015SF11670

PATIENT
  Sex: Male
  Weight: 95.3 kg

DRUGS (6)
  1. METFORMIN [Concomitant]
     Active Substance: METFORMIN HYDROCHLORIDE
  2. INSULIN [Concomitant]
     Active Substance: INSULIN NOS
     Route: 058
  3. HUMALOG [Concomitant]
     Active Substance: INSULIN LISPRO
  4. NPH INSULIN [Concomitant]
     Active Substance: INSULIN BEEF
     Dosage: 7 UNITS TWO TIMES A DAY
  5. BYDUREON [Suspect]
     Active Substance: EXENATIDE
     Indication: TYPE 2 DIABETES MELLITUS
     Route: 058
  6. BYETTA [Suspect]
     Active Substance: EXENATIDE
     Indication: TYPE 2 DIABETES MELLITUS
     Route: 065

REACTIONS (12)
  - Blood glucose decreased [Unknown]
  - Hot flush [Recovered/Resolved]
  - Nausea [Unknown]
  - Dizziness [Recovered/Resolved]
  - Weight decreased [Unknown]
  - Blood glucose increased [Not Recovered/Not Resolved]
  - Vomiting [Unknown]
  - Weight increased [Unknown]
  - Dysgeusia [Unknown]
  - Device use issue [Unknown]
  - Feeling abnormal [Recovered/Resolved]
  - Incorrect dose administered [Unknown]
